FAERS Safety Report 4916603-1 (Version None)
Quarter: 2006Q1

REPORT INFORMATION
  Report Type: 
  Country: None (occurrence: None)
  Receive Date: 20060220
  Receipt Date: 20060206
  Transmission Date: 20060701
  Serious: Yes (Hospitalization)
  Sender: FDA-Public Use
  Company Number: JP-GLAXOSMITHKLINE-B0409356A

PATIENT
  Age: 42 Year
  Sex: Male

DRUGS (3)
  1. EPIVIR [Suspect]
     Indication: HIV INFECTION
     Route: 048
     Dates: start: 20021220
  2. RETROVIR [Suspect]
     Indication: ACQUIRED IMMUNODEFICIENCY SYNDROME
     Dosage: 400MG PER DAY
     Route: 048
     Dates: start: 20021220
  3. KALETRA [Suspect]
     Indication: HIV INFECTION
     Dosage: 6UNIT PER DAY
     Route: 048
     Dates: start: 20021220

REACTIONS (6)
  - HYPERLACTACIDAEMIA [None]
  - HYPERTHYROIDISM [None]
  - HYPOKALAEMIA [None]
  - LIVER DISORDER [None]
  - PARALYSIS [None]
  - PLATELET COUNT DECREASED [None]
